FAERS Safety Report 6789419-1 (Version None)
Quarter: 2010Q2

REPORT INFORMATION
  Report Type: 
  Country: None (occurrence: None)
  Receive Date: 20100623
  Receipt Date: 20100325
  Transmission Date: 20101027
  Serious: No
  Sender: FDA-Public Use
  Company Number: US-PFIZER INC-2008049050

PATIENT
  Sex: Male
  Weight: 35 kg

DRUGS (1)
  1. GENOTROPIN [Suspect]
     Indication: PRADER-WILLI SYNDROME
     Dosage: 1.4 MG, 1X/DAY
     Dates: start: 20020101

REACTIONS (4)
  - ACNE [None]
  - ANGER [None]
  - HAIR GROWTH ABNORMAL [None]
  - SCOLIOSIS [None]
